FAERS Safety Report 6865908-6 (Version None)
Quarter: 2010Q3

REPORT INFORMATION
  Report Type: 
  Country: None (occurrence: None)
  Receive Date: 20100719
  Receipt Date: 20100710
  Transmission Date: 20110219
  Serious: Yes (Hospitalization)
  Sender: FDA-Public Use
  Company Number: RB-07630-2010

PATIENT
  Age: 54 Year
  Sex: Female

DRUGS (5)
  1. SUBOXONE [Suspect]
     Indication: DRUG DEPENDENCE
     Dosage: (12 MG QD SUBLINGUAL)
     Route: 060
     Dates: start: 20100101, end: 20100601
  2. LEVOXYL [Concomitant]
  3. VOLTAREN [Concomitant]
  4. PRISTIQ [Concomitant]
  5. FLEXERIL [Concomitant]

REACTIONS (4)
  - COUGH [None]
  - HYPERHIDROSIS [None]
  - HYPOAESTHESIA [None]
  - MENORRHAGIA [None]
